FAERS Safety Report 10064665 (Version 1)
Quarter: 2014Q2

REPORT INFORMATION
  Report Type: Spontaneous
  Country: US (occurrence: None)
  Receive Date: 20140407
  Receipt Date: 20140407
  Transmission Date: 20141212
  Serious: Yes (Life-Threatening, Disabling)
  Sender: FDA-Public Use
  Company Number: None

PATIENT
  Age: 47 Year
  Sex: Male
  Weight: 113.4 kg

DRUGS (1)
  1. METHYLPHENIDATE ER [Suspect]
     Indication: ATTENTION DEFICIT/HYPERACTIVITY DISORDER
     Route: 048
     Dates: start: 20130415, end: 20140331

REACTIONS (11)
  - Product substitution issue [None]
  - Product quality issue [None]
  - Gastrooesophageal reflux disease [None]
  - Abdominal pain upper [None]
  - Depression suicidal [None]
  - Asthenia [None]
  - Apathy [None]
  - Muscle spasms [None]
  - Arthralgia [None]
  - Gait disturbance [None]
  - Impaired work ability [None]
